FAERS Safety Report 24227633 (Version 3)
Quarter: 2025Q2

REPORT INFORMATION
  Report Type: Spontaneous
  Country: US (occurrence: US)
  Receive Date: 20240820
  Receipt Date: 20250510
  Transmission Date: 20250716
  Serious: No
  Sender: SANOFI AVENTIS
  Company Number: US-SA-SAC20240814000728

PATIENT
  Age: 66 Year
  Sex: Male

DRUGS (3)
  1. DUPIXENT [Suspect]
     Active Substance: DUPILUMAB
     Indication: Nasal polyps
     Dosage: 300 MG, QOW
     Route: 058
  2. DUPIXENT [Suspect]
     Active Substance: DUPILUMAB
     Indication: Vasomotor rhinitis
  3. DUPIXENT [Suspect]
     Active Substance: DUPILUMAB
     Indication: Nasal polyps

REACTIONS (6)
  - Throat irritation [Unknown]
  - Productive cough [Unknown]
  - Toothache [Unknown]
  - Insomnia [Recovering/Resolving]
  - Therapeutic response unexpected [Unknown]
  - Product use in unapproved indication [Unknown]
